FAERS Safety Report 8270118-4 (Version None)
Quarter: 2012Q2

REPORT INFORMATION
  Report Type: 
  Country: None (occurrence: None)
  Receive Date: 20120410
  Receipt Date: 20120402
  Transmission Date: 20120825
  Serious: Yes (Other)
  Sender: FDA-Public Use
  Company Number: PHHY2012BR028468

PATIENT
  Sex: Female

DRUGS (1)
  1. AMLODIPINE/VALSARTAN [Suspect]
     Dosage: (160 MG VALSARTAN, 5 MG AMLODIPINE)

REACTIONS (2)
  - HYPERTENSION [None]
  - DIABETES MELLITUS [None]
